FAERS Safety Report 10068719 (Version 1)
Quarter: 2014Q2

REPORT INFORMATION
  Report Type: Spontaneous
  Country: US (occurrence: US)
  Receive Date: 20140409
  Receipt Date: 20140409
  Transmission Date: 20141212
  Serious: No
  Sender: FDA-Public Use
  Company Number: US-BAUSCH-BL-2013-002532

PATIENT
  Age: 71 Year
  Sex: Male

DRUGS (2)
  1. FLUNISOLIDE NASAL SOLUTION USP 0.025% [Suspect]
     Indication: SEASONAL ALLERGY
     Dosage: 2 SPRAYS IN EACH NOSTRIL; TWICE DAILY; NASAL
     Route: 045
     Dates: start: 2012, end: 201303
  2. FLUNISOLIDE NASAL SOLUTION USP 0.025% [Suspect]
     Indication: NASAL CONGESTION

REACTIONS (3)
  - Nasal congestion [Recovered/Resolved]
  - Condition aggravated [Recovered/Resolved]
  - Cough [Recovered/Resolved]
